FAERS Safety Report 7499787-3 (Version None)
Quarter: 2011Q2

REPORT INFORMATION
  Report Type: 
  Country: None (occurrence: None)
  Receive Date: 20110524
  Receipt Date: 20110517
  Transmission Date: 20111010
  Serious: Yes (Hospitalization)
  Sender: FDA-Public Use
  Company Number: JP-ALLERGAN-1106920US

PATIENT
  Age: 54 Year
  Sex: Male

DRUGS (11)
  1. DANTRIUM [Concomitant]
  2. BOTOX [Suspect]
     Dosage: UNK
     Dates: start: 20030221, end: 20030221
  3. BOTOX [Suspect]
     Dosage: UNK
     Dates: start: 20021129, end: 20021129
  4. BOTOX [Suspect]
     Dosage: UNK
     Dates: start: 20020909, end: 20020909
  5. DIAZEPAM [Concomitant]
  6. LANDSEN [Concomitant]
  7. LOXONIN [Concomitant]
  8. ARTANE [Concomitant]
  9. MARZULENE [Concomitant]
  10. BOTOX [Suspect]
     Indication: TORTICOLLIS
     Dosage: UNK
     Dates: start: 20030822, end: 20030822
  11. BOTOX [Suspect]
     Dosage: UNK
     Dates: start: 20030530, end: 20030530

REACTIONS (1)
  - CHRONIC MYELOID LEUKAEMIA [None]
